FAERS Safety Report 5091127-2 (Version None)
Quarter: 2006Q3

REPORT INFORMATION
  Report Type: 
  Country: None (occurrence: None)
  Receive Date: 20060829
  Receipt Date: 20060626
  Transmission Date: 20061208
  Serious: Yes (Hospitalization)
  Sender: FDA-Public Use
  Company Number: JP-BAYER-200612630GDS

PATIENT
  Age: 76 Year
  Sex: Male
  Weight: 65 kg

DRUGS (1)
  1. 8-HOUR BAYER [Suspect]
     Indication: ANTICOAGULANT THERAPY
     Route: 048
     Dates: start: 19940101, end: 20050414

REACTIONS (2)
  - ABDOMINAL PAIN [None]
  - HAEMOBILIA [None]
